FAERS Safety Report 18639852 (Version 1)
Quarter: 2020Q4

REPORT INFORMATION
  Report Type: Spontaneous
  Country: BR (occurrence: BR)
  Receive Date: 20201220
  Receipt Date: 20201220
  Transmission Date: 20210114
  Serious: Yes (Other)
  Sender: FDA-Public Use
  Company Number: NVSC2020BR331341

PATIENT
  Age: 46 Year
  Sex: Female

DRUGS (3)
  1. DESOGESTREL [Suspect]
     Active Substance: DESOGESTREL
     Indication: ORAL CONTRACEPTION
     Dosage: 75 UG (MCG)
     Route: 065
     Dates: start: 2014
  2. RIBOCICLIB. [Suspect]
     Active Substance: RIBOCICLIB
     Indication: BREAST CANCER METASTATIC
     Dosage: 600 MG, QD
     Route: 065
     Dates: start: 20191028
  3. ZOLEDRONIC ACID [Suspect]
     Active Substance: ZOLEDRONIC ACID
     Indication: BREAST CANCER METASTATIC
     Dosage: UNK(QUATERLY)
     Route: 065
     Dates: start: 20191004

REACTIONS (9)
  - Metastases to bone [Unknown]
  - Neutropenia [Unknown]
  - Metastases to lymph nodes [Unknown]
  - Breast mass [Unknown]
  - Lymphoedema [Unknown]
  - Hypocalcaemia [Unknown]
  - Intraductal proliferative breast lesion [Unknown]
  - Lacrimation increased [Unknown]
  - Asthenia [Unknown]

NARRATIVE: CASE EVENT DATE: 201907
